FAERS Safety Report 10944416 (Version 1)
Quarter: 2015Q1

REPORT INFORMATION
  Report Type: Spontaneous
  Country: US (occurrence: US)
  Receive Date: 20150323
  Receipt Date: 20150323
  Transmission Date: 20150721
  Serious: No
  Sender: FDA-Public Use
  Company Number: US-009507513-1503USA006615

PATIENT
  Age: 44 Year
  Sex: Female
  Weight: 66 kg

DRUGS (2)
  1. MAXALT [Suspect]
     Active Substance: RIZATRIPTAN BENZOATE
     Indication: MIGRAINE
     Dosage: UNK
     Route: 048
     Dates: start: 1995, end: 2008
  2. RELPAX [Concomitant]
     Active Substance: ELETRIPTAN HYDROBROMIDE
     Indication: MIGRAINE
     Dosage: UNK
     Dates: end: 201502

REACTIONS (3)
  - Brain operation [Unknown]
  - Drug ineffective [Unknown]
  - Migraine [Unknown]

NARRATIVE: CASE EVENT DATE: 20080501
